FAERS Safety Report 7322754-7 (Version None)
Quarter: 2011Q1

REPORT INFORMATION
  Report Type: 
  Country: None (occurrence: None)
  Receive Date: 20110301
  Receipt Date: 20110215
  Transmission Date: 20110831
  Serious: Yes (Life-Threatening, Hospitalization)
  Sender: FDA-Public Use
  Company Number: GB-RANBAXY-2011R1-42008

PATIENT

DRUGS (6)
  1. MIDAZOLAM HCL [Concomitant]
     Indication: GENERAL ANAESTHESIA
     Dosage: UNK
     Route: 065
  2. RAMIPRIL [Concomitant]
     Indication: PRODUCT USED FOR UNKNOWN INDICATION
     Dosage: UNK
     Route: 065
  3. PROPOFOL [Concomitant]
     Indication: GENERAL ANAESTHESIA
     Dosage: UNK
     Route: 065
  4. AMOXICILLIN AND CLAVULANATE POTASSIUM [Suspect]
     Indication: PRODUCT USED FOR UNKNOWN INDICATION
     Dosage: 1.2 G, UNK
     Route: 042
     Dates: start: 20110128
  5. FENTANYL [Concomitant]
     Indication: GENERAL ANAESTHESIA
     Dosage: UNK
     Route: 065
  6. BENDROFLUAZIDE [Concomitant]
     Indication: PRODUCT USED FOR UNKNOWN INDICATION
     Dosage: UNK
     Route: 065

REACTIONS (2)
  - BRONCHOSPASM [None]
  - HYPOTENSION [None]
